FAERS Safety Report 4579957-4 (Version None)
Quarter: 2005Q1

REPORT INFORMATION
  Report Type: 
  Country: None (occurrence: None)
  Receive Date: 20050214
  Receipt Date: 20050203
  Transmission Date: 20050727
  Serious: Yes (Other)
  Sender: FDA-Public Use
  Company Number: ES-BRISTOL-MYERS SQUIBB COMPANY-12849329

PATIENT
  Sex: Male

DRUGS (4)
  1. REYATAZ [Suspect]
     Indication: HIV INFECTION
     Route: 048
  2. STAVUDINE [Concomitant]
     Dosage: THERAPY DISCONTINUED AND LATER RE-STARTED
  3. RITONAVIR [Concomitant]
  4. LAMIVUDINE [Concomitant]
     Dosage: THERAPY DISCONTINUED AND LATER RE-STARTED

REACTIONS (4)
  - EPISTAXIS [None]
  - RASH GENERALISED [None]
  - RECTAL HAEMORRHAGE [None]
  - VOMITING [None]
